FAERS Safety Report 11735182 (Version 1)
Quarter: 2015Q4

REPORT INFORMATION
  Report Type: Spontaneous
  Country: US (occurrence: None)
  Receive Date: 20151112
  Receipt Date: 20151112
  Transmission Date: 20160304
  Serious: Yes (Disabling)
  Sender: FDA-Public Use
  Company Number: None

PATIENT
  Age: 39 Year
  Sex: Female
  Weight: 68.04 kg

DRUGS (3)
  1. MIRENA [Suspect]
     Active Substance: LEVONORGESTREL
  2. RX VITAMIN D [Concomitant]
  3. ESSURE [Concomitant]
     Active Substance: DEVICE

REACTIONS (14)
  - Myalgia [None]
  - Headache [None]
  - Tremor [None]
  - Feeling abnormal [None]
  - Memory impairment [None]
  - Procedural complication [None]
  - Fatigue [None]
  - Dizziness [None]
  - Back pain [None]
  - Vitamin D decreased [None]
  - Arthralgia [None]
  - Asthenia [None]
  - Abdominal discomfort [None]
  - Onychoclasis [None]
